FAERS Safety Report 13332234 (Version 1)
Quarter: 2017Q1

REPORT INFORMATION
  Report Type: Spontaneous
  Country: US (occurrence: US)
  Receive Date: 20170314
  Receipt Date: 20170314
  Transmission Date: 20170428
  Serious: No
  Sender: FDA-Public Use
  Company Number: US-JNJFOC-20170227291

PATIENT
  Age: 8 Decade
  Sex: Male
  Weight: 79.38 kg

DRUGS (4)
  1. TYLENOL EXTRA STRENGTH [Suspect]
     Active Substance: ACETAMINOPHEN
     Indication: PAIN
     Dosage: FOR ABOUT 8 WEEKS.
     Route: 048
  2. VITAMIN B12 [Concomitant]
     Active Substance: CYANOCOBALAMIN
     Indication: GENERAL PHYSICAL CONDITION
     Dosage: 1-2, SINCE YEARS
     Route: 065
  3. ZINC. [Concomitant]
     Active Substance: ZINC
     Indication: GENERAL PHYSICAL CONDITION
     Dosage: 1-2, SINCE YEARS
     Route: 065
  4. VITAMIN-A [Concomitant]
     Active Substance: VITAMIN A
     Indication: GENERAL PHYSICAL CONDITION
     Dosage: 1-2, SINCE YEARS
     Route: 065

REACTIONS (3)
  - Ocular hyperaemia [Recovering/Resolving]
  - Eye discharge [Recovering/Resolving]
  - Eye pruritus [Recovering/Resolving]

NARRATIVE: CASE EVENT DATE: 20170225
